FAERS Safety Report 14599599 (Version 1)
Quarter: 2018Q1

REPORT INFORMATION
  Report Type: Spontaneous
  Country: JP (occurrence: JP)
  Receive Date: 20180305
  Receipt Date: 20180305
  Transmission Date: 20180509
  Serious: Yes (Other)
  Sender: FDA-Public Use
  Company Number: JP-PFIZER INC-2018083135

PATIENT

DRUGS (1)
  1. INLYTA [Suspect]
     Active Substance: AXITINIB
     Dosage: UNK

REACTIONS (5)
  - Diarrhoea [Unknown]
  - Hypothyroidism [Unknown]
  - Neoplasm progression [Unknown]
  - Adrenal insufficiency [Unknown]
  - Hypertension [Unknown]
